FAERS Safety Report 21202415 (Version 2)
Quarter: 2022Q3

REPORT INFORMATION
  Report Type: Spontaneous
  Country: NL (occurrence: NL)
  Receive Date: 20220811
  Receipt Date: 20220822
  Transmission Date: 20221027
  Serious: Yes (Other)
  Sender: FDA-Public Use
  Company Number: None

PATIENT
  Sex: Male
  Weight: 72 kg

DRUGS (1)
  1. DEXAMETHASONE [Suspect]
     Active Substance: DEXAMETHASONE
     Indication: Constipation
     Route: 065
     Dates: start: 2022

REACTIONS (3)
  - Depressed level of consciousness [Recovering/Resolving]
  - Loss of consciousness [Recovered/Resolved]
  - Conversion disorder [Recovering/Resolving]
